FAERS Safety Report 16858277 (Version 1)
Quarter: 2019Q3

REPORT INFORMATION
  Report Type: Spontaneous
  Country: DE (occurrence: DE)
  Receive Date: 20190926
  Receipt Date: 20190926
  Transmission Date: 20191005
  Serious: Yes (Other)
  Sender: FDA-Public Use
  Company Number: PHHY2019DE222985

PATIENT
  Sex: Female

DRUGS (9)
  1. LACOSAMIDE. [Suspect]
     Active Substance: LACOSAMIDE
     Dosage: 100 MG, QD (50 MG, 2X/DAY (BID) 50-0-50)
     Route: 065
     Dates: start: 20141216, end: 20141218
  2. LYRICA [Concomitant]
     Active Substance: PREGABALIN
     Indication: NEUROPATHY PERIPHERAL
     Dosage: 750 MG, QD (150-300-300)
     Route: 065
  3. LEVETIRACETAM. [Suspect]
     Active Substance: LEVETIRACETAM
     Dosage: UNK (DOSE INCREASED) (FIRST TRIMESTER)
     Route: 065
  4. LEVETIRACETAM. [Suspect]
     Active Substance: LEVETIRACETAM
     Dosage: 3000 MG, QD (2X/DAY (BID)) (FIRST TRIMESTER)
     Route: 065
     Dates: start: 20141215, end: 20141215
  5. LEVETIRACETAM. [Suspect]
     Active Substance: LEVETIRACETAM
     Dosage: 1500 MG, QD DOSE REDUCTION (750 MG X2) (FIRST TRIMESTER)
     Route: 065
  6. LEVETIRACETAM. [Suspect]
     Active Substance: LEVETIRACETAM
     Dosage: 3500 MG, QD (1000-1000-500-1000, 4X/DAY (QID)) (FIRST TRIMESTER)
     Route: 065
     Dates: start: 20141216
  7. LACOSAMIDE. [Suspect]
     Active Substance: LACOSAMIDE
     Dosage: 100 MG, QD
     Route: 065
     Dates: start: 2014, end: 20141215
  8. LEVETIRACETAM. [Suspect]
     Active Substance: LEVETIRACETAM
     Indication: EPILEPSY
     Dosage: 3500 MG, QD (3X/DAY (TID)) (1500-500-1500) (FIRST TRIMESTER)
     Route: 065
     Dates: end: 201406
  9. LACOSAMIDE. [Suspect]
     Active Substance: LACOSAMIDE
     Indication: EPILEPSY
     Dosage: 200 MG, QD (100 MG, 2X/DAY (BID)) (1ST TRIMISTER)
     Route: 048
     Dates: start: 201406, end: 2014

REACTIONS (5)
  - Premature delivery [Unknown]
  - Maternal exposure during pregnancy [Unknown]
  - Maternal exposure during breast feeding [Unknown]
  - Overdose [Unknown]
  - Off label use [Unknown]

NARRATIVE: CASE EVENT DATE: 20141113
